FAERS Safety Report 6506625-1 (Version None)
Quarter: 2009Q4

REPORT INFORMATION
  Report Type: 
  Country: None (occurrence: None)
  Receive Date: 20091216
  Receipt Date: 20091113
  Transmission Date: 20100525
  Serious: Yes (Other)
  Sender: FDA-Public Use
  Company Number: 09AE004

PATIENT
  Sex: Female

DRUGS (1)
  1. ESTERIFIED ESTROGENS/METHYLTESTOSTERONE 1.25,2.5MG [Suspect]
     Indication: MENOPAUSAL SYMPTOMS

REACTIONS (2)
  - DRUG INEFFECTIVE [None]
  - PRODUCT SUBSTITUTION ISSUE [None]
